FAERS Safety Report 22647020 (Version 1)
Quarter: 2023Q2

REPORT INFORMATION
  Report Type: Spontaneous
  Country: JP (occurrence: JP)
  Receive Date: 20230627
  Receipt Date: 20230627
  Transmission Date: 20230721
  Serious: Yes (Other)
  Sender: FDA-Public Use
  Company Number: JP-MLMSERVICE-20230616-4353193-1

PATIENT
  Age: 53 Year
  Sex: Male

DRUGS (6)
  1. FLUOROURACIL [Suspect]
     Active Substance: FLUOROURACIL
     Indication: Squamous cell carcinoma
     Dosage: ONE COURSE OF CHEMOTHERAPY
     Route: 065
  2. FLUOROURACIL [Suspect]
     Active Substance: FLUOROURACIL
     Indication: Laryngeal cancer
  3. DOCETAXEL [Suspect]
     Active Substance: DOCETAXEL
     Indication: Squamous cell carcinoma
     Dosage: ONE COURSE OF CHEMOTHERAPY
     Route: 065
  4. DOCETAXEL [Suspect]
     Active Substance: DOCETAXEL
     Indication: Laryngeal cancer
  5. NEDAPLATIN [Suspect]
     Active Substance: NEDAPLATIN
     Indication: Squamous cell carcinoma
     Dosage: ONE COURSE OF CHEMOTHERAPY
     Route: 065
  6. NEDAPLATIN [Suspect]
     Active Substance: NEDAPLATIN
     Indication: Laryngeal cancer

REACTIONS (2)
  - Neutropenia [Unknown]
  - Pyrexia [Unknown]
